FAERS Safety Report 17874877 (Version 1)
Quarter: 2020Q2

REPORT INFORMATION
  Report Type: Spontaneous
  Country: US (occurrence: US)
  Receive Date: 20200609
  Receipt Date: 20200609
  Transmission Date: 20200714
  Serious: Yes (Hospitalization)
  Sender: FDA-Public Use
  Company Number: US-MYLANLABS-2020M1054882

PATIENT
  Age: 71 Year
  Sex: Female

DRUGS (2)
  1. SIMVASTATIN. [Suspect]
     Active Substance: SIMVASTATIN
     Indication: OBESITY
  2. SIMVASTATIN. [Suspect]
     Active Substance: SIMVASTATIN
     Indication: HYPERLIPIDAEMIA
     Dosage: UNK
     Route: 065

REACTIONS (5)
  - Immune-mediated myositis [Unknown]
  - Respiratory failure [Unknown]
  - Axonal neuropathy [Unknown]
  - Delirium [Unknown]
  - Peripheral sensorimotor neuropathy [Unknown]
